FAERS Safety Report 24687446 (Version 1)
Quarter: 2024Q4

REPORT INFORMATION
  Report Type: Spontaneous
  Country: US (occurrence: None)
  Receive Date: 20241201
  Receipt Date: 20241201
  Transmission Date: 20250115
  Serious: Yes (Hospitalization, Disabling)
  Sender: Public
  Company Number: None

PATIENT
  Age: 48 Year
  Sex: Male
  Weight: 76.5 kg

DRUGS (12)
  1. ESOMEPRAZOLE [Suspect]
     Active Substance: ESOMEPRAZOLE
     Indication: Dyspepsia
     Dosage: OTHER QUANTITY : 14 CAPSULE(S);?FREQUENCY : TWICE A DAY;?
     Route: 048
     Dates: start: 20230110, end: 20241125
  2. ESOMEPRAZOLE [Suspect]
     Active Substance: ESOMEPRAZOLE
     Indication: Gastrooesophageal reflux disease
  3. OMEPRAZOLE [Concomitant]
  4. B1 [Concomitant]
  5. B12 [Concomitant]
  6. SELENIUM [Concomitant]
     Active Substance: SELENIUM
  7. IODINE [Concomitant]
     Active Substance: IODINE
  8. METHYLENE BLUE [Concomitant]
     Active Substance: METHYLENE BLUE
  9. ASCORBIC ACID [Concomitant]
     Active Substance: ASCORBIC ACID
  10. D3 [Concomitant]
  11. VITAMIN B COMPLEX [Concomitant]
     Active Substance: CYANOCOBALAMIN\DEXPANTHENOL\NIACINAMIDE\PYRIDOXINE HYDROCHLORIDE\RIBOFLAVIN 5^-PHOSPHATE SODIUM\THIA
  12. VITAMINS [Concomitant]
     Active Substance: VITAMINS

REACTIONS (9)
  - Drug ineffective [None]
  - Drug tolerance [None]
  - Therapy change [None]
  - Dizziness [None]
  - Presyncope [None]
  - Tachycardia [None]
  - General physical health deterioration [None]
  - Therapy change [None]
  - Economic problem [None]

NARRATIVE: CASE EVENT DATE: 20240814
